FAERS Safety Report 7013216-5 (Version None)
Quarter: 2010Q3

REPORT INFORMATION
  Report Type: 
  Country: None (occurrence: None)
  Receive Date: 20100924
  Receipt Date: 20100802
  Transmission Date: 20110219
  Serious: No
  Sender: FDA-Public Use
  Company Number: US-JNJFOC-20100708773

PATIENT
  Sex: Female

DRUGS (10)
  1. INVEGA SUSTENNA [Suspect]
     Indication: SCHIZOPHRENIA
     Route: 030
  2. INVEGA [Concomitant]
     Indication: SCHIZOPHRENIA
     Route: 048
  3. CELEXA [Concomitant]
     Indication: DEPRESSION
  4. THEOPHYLLINE [Concomitant]
     Indication: ASTHMA
  5. GLUCOPHAGE [Concomitant]
     Indication: DIABETES MELLITUS
  6. GLIPIZIDE [Concomitant]
     Indication: DIABETES MELLITUS
  7. SIMVASTATIN [Concomitant]
     Indication: BLOOD CHOLESTEROL
  8. LISINOPRIL [Concomitant]
     Indication: BLOOD PRESSURE
  9. CYCLOBENZAPRINE [Concomitant]
     Indication: MUSCLE SPASMS
  10. FLOVENT [Concomitant]
     Indication: ASTHMA
     Route: 055

REACTIONS (2)
  - INJECTION SITE NODULE [None]
  - INJECTION SITE PAIN [None]
